FAERS Safety Report 7645505-5 (Version None)
Quarter: 2011Q3

REPORT INFORMATION
  Report Type: 
  Country: None (occurrence: None)
  Receive Date: 20110729
  Receipt Date: 20110719
  Transmission Date: 20111222
  Serious: Yes (Other)
  Sender: FDA-Public Use
  Company Number: IT-JNJFOC-20110708604

PATIENT
  Age: 51 Year
  Sex: Female

DRUGS (3)
  1. REMICADE [Suspect]
     Route: 042
     Dates: start: 20110609, end: 20110707
  2. REMICADE [Suspect]
     Indication: PSORIATIC ARTHROPATHY
     Route: 042
     Dates: start: 20051201, end: 20101201
  3. METHOTREXATE [Concomitant]
     Route: 048

REACTIONS (7)
  - INFUSION RELATED REACTION [None]
  - TACHYCARDIA [None]
  - VASODILATATION [None]
  - ERYTHEMA [None]
  - UTERINE LEIOMYOMA [None]
  - DYSPNOEA [None]
  - HYPERTENSION [None]
